FAERS Safety Report 9956973 (Version 1)
Quarter: 2014Q1

REPORT INFORMATION
  Report Type: Report from Study
  Country: US (occurrence: US)
  Receive Date: 20140304
  Receipt Date: 20140304
  Transmission Date: 20141002
  Serious: No
  Sender: FDA-Public Use
  Company Number: US-ABBVIE-13P-163-1099365-00

PATIENT
  Age: 71 Year
  Sex: Female

DRUGS (4)
  1. HUMIRA [Suspect]
     Indication: ANKYLOSING SPONDYLITIS
     Dates: start: 2007
  2. LEVOXYL [Concomitant]
     Indication: HYPOTHYROIDISM
     Dosage: 75MCG DAILY
     Route: 048
  3. AVAPRO [Concomitant]
     Indication: HYPERTENSION
     Dosage: 300MG DAILY
     Route: 048
  4. AVAPRO [Concomitant]
     Route: 048

REACTIONS (4)
  - Oropharyngeal pain [Recovering/Resolving]
  - Blood pressure increased [Unknown]
  - Headache [Recovering/Resolving]
  - Feeling abnormal [Recovering/Resolving]
